FAERS Safety Report 15607463 (Version 1)
Quarter: 2018Q4

REPORT INFORMATION
  Report Type: Spontaneous
  Country: TR (occurrence: TR)
  Receive Date: 20181112
  Receipt Date: 20181112
  Transmission Date: 20190205
  Serious: Yes (Hospitalization, Other)
  Sender: FDA-Public Use
  Company Number: TR-IMPAX LABORATORIES, LLC-2018-IPXL-03701

PATIENT
  Age: 44 Year
  Sex: Female

DRUGS (2)
  1. OXCARBAZEPINE. [Suspect]
     Active Substance: OXCARBAZEPINE
     Indication: TEMPORAL LOBE EPILEPSY
     Dosage: 1200 MILLIGRAM, DAILY
     Route: 065
  2. LAMOTRIGINE ODT [Suspect]
     Active Substance: LAMOTRIGINE
     Indication: TEMPORAL LOBE EPILEPSY
     Dosage: 200 MILLIGRAM, DAILY
     Route: 065

REACTIONS (4)
  - Parkinsonism [Recovering/Resolving]
  - Brain injury [Unknown]
  - Cardiac arrest [Recovering/Resolving]
  - Epilepsy [Unknown]
